FAERS Safety Report 8633517 (Version 9)
Quarter: 2012Q4

REPORT INFORMATION
  Report Type: Report from Study
  Country: AT (occurrence: AT)
  Receive Date: 20120625
  Receipt Date: 20121119
  Transmission Date: 20130627
  Serious: Yes (Hospitalization)
  Sender: FDA-Public Use
  Company Number: AT-ROCHE-1069887

PATIENT
  Age: 86 Year
  Sex: Male
  Weight: 69 kg

DRUGS (3)
  1. VEMURAFENIB [Suspect]
     Indication: MALIGNANT MELANOMA
     Dosage: last dose prior to sae on 14/MAY/2012
     Route: 048
     Dates: start: 20120126, end: 20120514
  2. VEMURAFENIB [Suspect]
     Route: 048
     Dates: end: 20120516
  3. VEMURAFENIB [Suspect]
     Dosage: permanently discontinued
     Route: 065
     Dates: end: 20120523

REACTIONS (1)
  - Melanomatous meningitis [Not Recovered/Not Resolved]
